FAERS Safety Report 5313094-6 (Version None)
Quarter: 2007Q2

REPORT INFORMATION
  Report Type: 
  Country: None (occurrence: None)
  Receive Date: 20070424
  Receipt Date: 20070411
  Transmission Date: 20071010
  Serious: Yes (Death, Life-Threatening, Hospitalization)
  Sender: FDA-Public Use
  Company Number: CLOF-10501

PATIENT
  Age: 73 Year
  Sex: Male

DRUGS (2)
  1. CLOFARABINE (BLINDED) [Suspect]
     Indication: ACUTE MYELOID LEUKAEMIA
     Dosage: 40 MG/M2 QD X 5 IV
     Route: 042
     Dates: start: 20070321
  2. CYTARABINE [Suspect]
     Indication: ACUTE MYELOID LEUKAEMIA
     Dosage: 1000 MG QD X 5 IV
     Route: 042
     Dates: start: 20070321

REACTIONS (4)
  - CEREBRAL FUNGAL INFECTION [None]
  - CEREBROVASCULAR ACCIDENT [None]
  - FUNGAL INFECTION [None]
  - GRAND MAL CONVULSION [None]
